FAERS Safety Report 17081548 (Version 1)
Quarter: 2019Q4

REPORT INFORMATION
  Report Type: Spontaneous
  Country: US (occurrence: US)
  Receive Date: 20191127
  Receipt Date: 20191127
  Transmission Date: 20200122
  Serious: No
  Sender: FDA-Public Use
  Company Number: US-009507513-1911USA007298

PATIENT
  Age: 64 Year
  Sex: Female

DRUGS (1)
  1. ASMANEX [Suspect]
     Active Substance: MOMETASONE FUROATE
     Indication: CHRONIC OBSTRUCTIVE PULMONARY DISEASE
     Dosage: 2 PUFFS, DAILY
     Route: 055
     Dates: start: 201907

REACTIONS (7)
  - Dysphonia [Not Recovered/Not Resolved]
  - Poor quality device used [Unknown]
  - Intentional product misuse [Unknown]
  - Product dose omission [Unknown]
  - Product quality issue [Unknown]
  - Productive cough [Not Recovered/Not Resolved]
  - Product use in unapproved indication [Unknown]

NARRATIVE: CASE EVENT DATE: 2011
